FAERS Safety Report 13891268 (Version 4)
Quarter: 2017Q3

REPORT INFORMATION
  Report Type: Spontaneous
  Country: US (occurrence: US)
  Receive Date: 20170822
  Receipt Date: 20170907
  Transmission Date: 20171127
  Serious: No
  Sender: FDA-Public Use
  Company Number: US-PFIZER INC-2017359286

PATIENT
  Age: 87 Year
  Sex: Female
  Weight: 53.97 kg

DRUGS (2)
  1. BOSULIF [Suspect]
     Active Substance: BOSUTINIB MONOHYDRATE
     Indication: CHRONIC MYELOID LEUKAEMIA
     Dosage: 400 MG, DAILY
     Dates: start: 20170811
  2. BOSULIF [Suspect]
     Active Substance: BOSUTINIB MONOHYDRATE
     Dosage: 100 MG, 4X/DAY
     Route: 048
     Dates: start: 20170811, end: 20170822

REACTIONS (10)
  - Fatigue [Unknown]
  - Chills [Unknown]
  - Nausea [Recovering/Resolving]
  - Hepatic enzyme increased [Unknown]
  - Asthenia [Unknown]
  - Throat irritation [Unknown]
  - Headache [Unknown]
  - Ageusia [Unknown]
  - Diarrhoea [Recovering/Resolving]
  - Abdominal pain upper [Unknown]

NARRATIVE: CASE EVENT DATE: 201708
